FAERS Safety Report 11046810 (Version 1)
Quarter: 2015Q2

REPORT INFORMATION
  Report Type: Spontaneous
  Country: US (occurrence: None)
  Receive Date: 20150417
  Receipt Date: 20150417
  Transmission Date: 20150821
  Serious: Yes (Hospitalization)
  Sender: FDA-Public Use
  Company Number: None

PATIENT
  Age: 61 Year
  Sex: Male
  Weight: 56.4 kg

DRUGS (2)
  1. APIXABAN [Suspect]
     Active Substance: APIXABAN
     Indication: ATRIAL FIBRILLATION
     Route: 048
     Dates: start: 20150114, end: 20150210
  2. ASPIRIN. [Suspect]
     Active Substance: ASPIRIN
     Indication: CEREBROVASCULAR ACCIDENT PROPHYLAXIS
     Route: 048
     Dates: start: 20111020, end: 20150210

REACTIONS (6)
  - Gastric haemorrhage [None]
  - Blood urea increased [None]
  - Blood creatinine increased [None]
  - Hypovolaemia [None]
  - Anaemia [None]
  - Tachycardia [None]

NARRATIVE: CASE EVENT DATE: 20150210
